FAERS Safety Report 15392858 (Version 1)
Quarter: 2018Q3

REPORT INFORMATION
  Report Type: Spontaneous
  Country: US (occurrence: US)
  Receive Date: 20180911
  Receipt Date: 20180911
  Transmission Date: 20181010
  Serious: Yes (Other)
  Sender: FDA-Public Use
  Company Number: None

PATIENT
  Age: 36 Year
  Sex: Female
  Weight: 102.15 kg

DRUGS (1)
  1. SUMATRIPTAN. [Suspect]
     Active Substance: SUMATRIPTAN
     Indication: MIGRAINE
     Dosage: ?          OTHER ROUTE:ORALLY?
     Route: 048
     Dates: start: 20170301, end: 20170525

REACTIONS (4)
  - Cerebral disorder [None]
  - Migraine [None]
  - Burning sensation [None]
  - Sensory disturbance [None]

NARRATIVE: CASE EVENT DATE: 20170525
